FAERS Safety Report 16076153 (Version 3)
Quarter: 2019Q3

REPORT INFORMATION
  Report Type: Spontaneous
  Country: CA (occurrence: CA)
  Receive Date: 20190315
  Receipt Date: 20190718
  Transmission Date: 20191004
  Serious: Yes (Other)
  Sender: FDA-Public Use
  Company Number: CA-AUROBINDO-AUR-APL-2019-012830

PATIENT

DRUGS (16)
  1. ATORVASTATIN TABLETS [Suspect]
     Active Substance: ATORVASTATIN
     Indication: XANTHOMA
     Dosage: UNK
     Route: 065
  2. ROSUVASTATIN TABLET [Suspect]
     Active Substance: ROSUVASTATIN
     Dosage: 10 MILLIGRAM, EVERY OTHER DAY
     Route: 048
  3. PRAVASTATIN TABLET [Suspect]
     Active Substance: PRAVASTATIN
     Indication: TYPE IIA HYPERLIPIDAEMIA
  4. LODALIS [Suspect]
     Active Substance: COLESEVELAM HYDROCHLORIDE
     Indication: TYPE IIA HYPERLIPIDAEMIA
     Dosage: UNK
     Route: 065
  5. CHOLESTAGEL [Suspect]
     Active Substance: COLESEVELAM HYDROCHLORIDE
     Indication: TYPE IIA HYPERLIPIDAEMIA
     Dosage: UNK
     Route: 065
  6. ROSUVASTATIN. [Suspect]
     Active Substance: ROSUVASTATIN
     Indication: TYPE IIA HYPERLIPIDAEMIA
     Dosage: 10 MILLIGRAM, ONCE A DAY
     Route: 065
  7. ATORVASTATIN TABLETS [Suspect]
     Active Substance: ATORVASTATIN
     Indication: TYPE IIA HYPERLIPIDAEMIA
  8. EZETIMIBE TABLETS [Suspect]
     Active Substance: EZETIMIBE
     Indication: TYPE IIA HYPERLIPIDAEMIA
     Dosage: 10 MILLIGRAM
     Route: 065
  9. ROSUVASTATIN TABLET [Suspect]
     Active Substance: ROSUVASTATIN
     Dosage: 10 MILLIGRAM, TWO EVERY TWO DAYS
     Route: 065
  10. PRAVASTATIN TABLET [Suspect]
     Active Substance: PRAVASTATIN
     Indication: XANTHOMA
     Dosage: 10 MILLIGRAM
     Route: 065
  11. REPATHA [Suspect]
     Active Substance: EVOLOCUMAB
     Indication: TYPE IIA HYPERLIPIDAEMIA
     Dosage: 140.0 MILLIGRAM, 1 EVERY 2 WEEK
     Route: 058
  12. EZETIMIBE TABLETS [Suspect]
     Active Substance: EZETIMIBE
     Indication: XANTHOMA
  13. EVOLOCUMAB [Suspect]
     Active Substance: EVOLOCUMAB
     Indication: XANTHOMA
  14. EVOLOCUMAB [Suspect]
     Active Substance: EVOLOCUMAB
     Indication: TYPE IIA HYPERLIPIDAEMIA
  15. ROSUVASTATIN TABLET [Suspect]
     Active Substance: ROSUVASTATIN
     Indication: TYPE IIA HYPERLIPIDAEMIA
     Dosage: 10.0 MILLIGRAM, 1 EVERY 1 WEEK
     Route: 048
  16. ROSUVASTATIN. [Suspect]
     Active Substance: ROSUVASTATIN
     Indication: XANTHOMA

REACTIONS (2)
  - Drug ineffective [Unknown]
  - Drug intolerance [Unknown]
